FAERS Safety Report 8734813 (Version 7)
Quarter: 2013Q2

REPORT INFORMATION
  Report Type: Spontaneous
  Country: US (occurrence: US)
  Receive Date: 20120821
  Receipt Date: 20130520
  Transmission Date: 20140414
  Serious: Yes (Congenital Anomaly, Other)
  Sender: FDA-Public Use
  Company Number: US-PFIZER INC-2012199790

PATIENT
  Age: 22 Month
  Sex: Female
  Weight: 2.4 kg

DRUGS (2)
  1. ZOLOFT [Suspect]
     Indication: DEPRESSION
     Dosage: 50 MG, UNK
     Route: 064
     Dates: start: 1996
  2. RISPERDAL [Suspect]
     Dosage: UNK
     Route: 064

REACTIONS (12)
  - Maternal exposure timing unspecified [Unknown]
  - Pulmonary valve stenosis [Unknown]
  - Mitral valve incompetence [Unknown]
  - Pneumonia [Unknown]
  - Cardiac murmur [Unknown]
  - Left atrial dilatation [Unknown]
  - Right ventricular hypertrophy [Unknown]
  - Faecaloma [Unknown]
  - Constipation [Unknown]
  - Functional gastrointestinal disorder [Unknown]
  - Asthma [Unknown]
  - Malaise [Unknown]
